FAERS Safety Report 5211236-4 (Version None)
Quarter: 2006Q4

REPORT INFORMATION
  Report Type: 
  Country: None (occurrence: None)
  Receive Date: 20061114
  Receipt Date: 20060828
  Transmission Date: 20070319
  Serious: No
  Sender: FDA-Public Use
  Company Number: S06-USA-03481-01

PATIENT
  Age: 80 Year
  Sex: Male

DRUGS (6)
  1. NAMENDA [Suspect]
     Indication: MEMORY IMPAIRMENT
     Dosage: 5 MG QD; PO
     Route: 048
     Dates: start: 20060801, end: 20060801
  2. NAMENDA [Suspect]
     Indication: MEMORY IMPAIRMENT
     Dosage: 5 MG BID; PO
     Route: 048
     Dates: start: 20060801, end: 20060801
  3. NAMENDA [Suspect]
     Indication: MEMORY IMPAIRMENT
     Dosage: 15 MG QD; PO
     Route: 048
     Dates: start: 20060801
  4. PLAVIX [Concomitant]
  5. NEXIUM [Concomitant]
  6. OTHER MEDICATIONS (NOS) [Concomitant]

REACTIONS (1)
  - DEPRESSION [None]
